FAERS Safety Report 7228990-2 (Version None)
Quarter: 2011Q1

REPORT INFORMATION
  Report Type: 
  Country: None (occurrence: None)
  Receive Date: 20110117
  Receipt Date: 20110107
  Transmission Date: 20110831
  Serious: Yes (Death)
  Sender: FDA-Public Use
  Company Number: US-JNJFOC-20100503926

PATIENT
  Sex: Male
  Weight: 111.13 kg

DRUGS (4)
  1. TOPAMAX [Suspect]
     Indication: TRIGEMINAL NEURALGIA
     Route: 048
  2. ZONEGRAN [Suspect]
     Indication: TRIGEMINAL NEURALGIA
     Route: 065
  3. NEURONTIN [Suspect]
     Indication: TRIGEMINAL NEURALGIA
     Route: 065
  4. METOPROLOL [Suspect]
     Indication: ILL-DEFINED DISORDER
     Route: 065

REACTIONS (7)
  - COMPLETED SUICIDE [None]
  - WRONG TECHNIQUE IN DRUG USAGE PROCESS [None]
  - PERSONALITY CHANGE [None]
  - FEELING ABNORMAL [None]
  - DRUG PRESCRIBING ERROR [None]
  - DIZZINESS [None]
  - DRUG INEFFECTIVE [None]
